FAERS Safety Report 20539776 (Version 1)
Quarter: 2022Q1

REPORT INFORMATION
  Report Type: Spontaneous
  Country: DO (occurrence: DO)
  Receive Date: 20220302
  Receipt Date: 20220302
  Transmission Date: 20220424
  Serious: Yes (Death)
  Sender: FDA-Public Use
  Company Number: DO-JNJFOC-20211109353

PATIENT
  Sex: Male

DRUGS (1)
  1. ERLEADA [Suspect]
     Active Substance: APALUTAMIDE
     Indication: Product used for unknown indication
     Route: 048

REACTIONS (1)
  - Death [Fatal]
